FAERS Safety Report 4523101-6 (Version None)
Quarter: 2004Q4

REPORT INFORMATION
  Report Type: 
  Country: None (occurrence: None)
  Receive Date: 20041210
  Receipt Date: 20041206
  Transmission Date: 20050328
  Serious: Yes (Death, Other)
  Sender: FDA-Public Use
  Company Number: 200419316US

PATIENT
  Age: 57 Year
  Sex: Male

DRUGS (1)
  1. AMARYL [Suspect]
     Dosage: DOSE: UNK

REACTIONS (1)
  - CARCINOMA [None]
